FAERS Safety Report 16864784 (Version 1)
Quarter: 2019Q3

REPORT INFORMATION
  Report Type: Spontaneous
  Country: DE (occurrence: DE)
  Receive Date: 20190929
  Receipt Date: 20190929
  Transmission Date: 20191005
  Serious: Yes (Other)
  Sender: FDA-Public Use
  Company Number: DE-TEVA-2019-DE-1113618

PATIENT
  Age: 66 Year
  Sex: Female

DRUGS (1)
  1. RANITIDIN-RATIOPHARM 300 MG FILMTABLETTEN [Suspect]
     Active Substance: RANITIDINE HYDROCHLORIDE
     Indication: DYSPEPSIA
     Dosage: FOR MANY YEARS
     Route: 048

REACTIONS (10)
  - Vision blurred [Not Recovered/Not Resolved]
  - Aspergillus infection [Recovering/Resolving]
  - Pyrexia [Not Recovered/Not Resolved]
  - Burning sensation [Not Recovered/Not Resolved]
  - Rash macular [Not Recovered/Not Resolved]
  - Skin haemorrhage [Not Recovered/Not Resolved]
  - Alternaria infection [Recovering/Resolving]
  - Fat tissue decreased [Not Recovered/Not Resolved]
  - Pruritus genital [Not Recovered/Not Resolved]
  - Suspected product contamination [Unknown]

NARRATIVE: CASE EVENT DATE: 201812
